FAERS Safety Report 7200617-5 (Version None)
Quarter: 2010Q4

REPORT INFORMATION
  Report Type: 
  Country: None (occurrence: None)
  Receive Date: 20101215
  Receipt Date: 20101201
  Transmission Date: 20110411
  Serious: Yes (Hospitalization)
  Sender: FDA-Public Use
  Company Number: UTC-002961

PATIENT
  Age: 56 Year
  Sex: Female

DRUGS (2)
  1. REMODULIN [Suspect]
     Indication: PULMONARY HYPERTENSION
     Dosage: 25.92  UG/KG (0.018 UG/KG,1 IN 1 MIN),SUBCUTANEOUS
     Route: 058
     Dates: start: 20100721
  2. ADCIRCA [Suspect]

REACTIONS (3)
  - CHEST PAIN [None]
  - DYSPNOEA [None]
  - PERICARDITIS [None]
